FAERS Safety Report 6636124-8 (Version None)
Quarter: 2010Q1

REPORT INFORMATION
  Report Type: 
  Country: None (occurrence: None)
  Receive Date: 20100316
  Receipt Date: 20100308
  Transmission Date: 20100710
  Serious: Yes (Other)
  Sender: FDA-Public Use
  Company Number: US-SANOFI-AVENTIS-2010SA008424

PATIENT
  Age: 68 Year
  Sex: Male
  Weight: 75 kg

DRUGS (27)
  1. LANTUS [Suspect]
     Indication: TYPE 2 DIABETES MELLITUS
     Dosage: (UNKNOWN) TO 25 UNITS HS, THEN 20 UNITS HS AND CURRENTLY 30 UNITS HS. DOSE:45 UNIT(S)
     Route: 058
     Dates: start: 20060101
  2. LANTUS [Suspect]
     Dosage: DOSE:25 UNIT(S)
     Route: 058
     Dates: start: 20091201
  3. LANTUS [Suspect]
     Dosage: DOSE:20 UNIT(S)
     Route: 058
  4. LANTUS [Suspect]
     Dosage: DOSE:30 UNIT(S)
     Route: 058
  5. HUMALOG [Concomitant]
     Indication: TYPE 2 DIABETES MELLITUS
     Dosage: SLIDING SCALE
  6. VITAMINS NOS [Concomitant]
     Route: 065
  7. ALPHAGAN [Concomitant]
     Route: 065
  8. ARTIFICIAL TEARS [Concomitant]
     Route: 065
  9. ALLOPURINOL [Concomitant]
     Route: 065
  10. VALIUM [Concomitant]
     Route: 065
  11. AVAPRO [Concomitant]
     Route: 065
  12. ASPIRIN [Concomitant]
     Route: 065
  13. REQUIP [Concomitant]
     Route: 065
  14. VYTORIN [Concomitant]
     Route: 065
  15. GEMFIBROZIL [Concomitant]
     Route: 065
  16. FLAXSEED OIL [Concomitant]
     Route: 065
  17. NIACIN [Concomitant]
     Route: 065
  18. TRAMADOL HYDROCHLORIDE [Concomitant]
     Route: 065
  19. CALCIUM [Concomitant]
     Route: 065
  20. ALENDRONATE SODIUM [Concomitant]
     Route: 065
  21. PROPRANOLOL [Concomitant]
     Route: 065
  22. VITAMIN D3 [Concomitant]
     Route: 065
  23. FUROSEMIDE [Concomitant]
     Route: 065
  24. POTASSIUM [Concomitant]
     Route: 065
  25. ZOLOFT [Concomitant]
     Route: 065
  26. CYCLOBENZAPRINE [Concomitant]
     Route: 065
  27. REGITINE [Concomitant]
     Route: 065

REACTIONS (4)
  - BLOOD GLUCOSE INCREASED [None]
  - HYPOGLYCAEMIA [None]
  - HYPOGLYCAEMIC UNCONSCIOUSNESS [None]
  - ROAD TRAFFIC ACCIDENT [None]
